FAERS Safety Report 14994109 (Version 1)
Quarter: 2018Q2

REPORT INFORMATION
  Report Type: Report from Study
  Country: US (occurrence: US)
  Receive Date: 20180611
  Receipt Date: 20180611
  Transmission Date: 20180711
  Serious: Yes (Other)
  Sender: FDA-Public Use
  Company Number: US-UCBSA-2018025687

PATIENT
  Age: 20 Year
  Sex: Female

DRUGS (1)
  1. CERTOLIZUMAB PEGOL CD [Suspect]
     Active Substance: CERTOLIZUMAB PEGOL
     Indication: CROHN^S DISEASE
     Dosage: UNKNOWN DOSE
     Route: 058
     Dates: start: 2008

REACTIONS (1)
  - Staphylococcal infection [Unknown]

NARRATIVE: CASE EVENT DATE: 2008
